FAERS Safety Report 9772085 (Version 1)
Quarter: 2013Q4

REPORT INFORMATION
  Report Type: Spontaneous
  Country: US (occurrence: None)
  Receive Date: 20131218
  Receipt Date: 20131218
  Transmission Date: 20140711
  Serious: No
  Sender: FDA-Public Use
  Company Number: None

PATIENT
  Age: 26 Year
  Sex: Female

DRUGS (1)
  1. MIRENA [Suspect]
     Dates: start: 20131028, end: 20131216

REACTIONS (4)
  - Uterine perforation [None]
  - Device dislocation [None]
  - Procedural pain [None]
  - Impaired work ability [None]
